FAERS Safety Report 4529402-X (Version None)
Quarter: 2004Q4

REPORT INFORMATION
  Report Type: 
  Country: None (occurrence: None)
  Receive Date: 20041216
  Receipt Date: 20041213
  Transmission Date: 20050328
  Serious: Yes (Hospitalization)
  Sender: FDA-Public Use
  Company Number: 04-12-1728

PATIENT

DRUGS (1)
  1. TRAMADOL HCL [Suspect]

REACTIONS (1)
  - NEONATAL RESPIRATORY DISTRESS SYNDROME [None]
